FAERS Safety Report 23063203 (Version 3)
Quarter: 2023Q4

REPORT INFORMATION
  Report Type: Spontaneous
  Country: JP (occurrence: JP)
  Receive Date: 20231013
  Receipt Date: 20231130
  Transmission Date: 20240110
  Serious: Yes (Hospitalization, Other)
  Sender: FDA-Public Use
  Company Number: JP-OTSUKA-2023_026363

PATIENT
  Age: 67 Year
  Sex: Male

DRUGS (4)
  1. REXULTI [Suspect]
     Active Substance: BREXPIPRAZOLE
     Indication: Mental disorder
     Dosage: 2MGX1/DAY
     Route: 048
  2. HALOPERIDOL [Concomitant]
     Active Substance: HALOPERIDOL
     Indication: Mental disorder
     Dosage: 3MGX3
     Route: 048
  3. BROMAZEPAM [Concomitant]
     Active Substance: BROMAZEPAM
     Indication: Mental disorder
     Dosage: 5MGX1
     Route: 048
  4. PROMETHAZINE HYDROCHLORIDE [Concomitant]
     Active Substance: PROMETHAZINE HYDROCHLORIDE
     Indication: Mental disorder
     Dosage: 25MGX2
     Route: 048

REACTIONS (3)
  - Hyperkalaemia [Unknown]
  - Hypokalaemia [Recovering/Resolving]
  - Metabolic disorder [Unknown]

NARRATIVE: CASE EVENT DATE: 20230101
